FAERS Safety Report 24417769 (Version 4)
Quarter: 2024Q4

REPORT INFORMATION
  Report Type: Spontaneous
  Country: PH (occurrence: PH)
  Receive Date: 20241009
  Receipt Date: 20241119
  Transmission Date: 20250114
  Serious: Yes (Hospitalization, Other)
  Sender: DAIICHI
  Company Number: PH-AstraZeneca-CH-00713366A

PATIENT
  Age: 40 Year
  Sex: Female

DRUGS (1)
  1. TRASTUZUMAB DERUXTECAN [Suspect]
     Active Substance: TRASTUZUMAB DERUXTECAN
     Indication: HER2 positive breast cancer
     Dosage: UNK
     Route: 042

REACTIONS (3)
  - Anaphylactic reaction [Recovered/Resolved]
  - Pyrexia [Unknown]
  - Chills [Unknown]
